FAERS Safety Report 21116377 (Version 1)
Quarter: 2022Q3

REPORT INFORMATION
  Report Type: Spontaneous
  Country: BR (occurrence: BR)
  Receive Date: 20220721
  Receipt Date: 20220721
  Transmission Date: 20221027
  Serious: Yes (Other)
  Sender: FDA-Public Use
  Company Number: BR-ABBVIE-22K-020-4476117-00

PATIENT
  Sex: Male
  Weight: 114 kg

DRUGS (1)
  1. HUMIRA [Suspect]
     Active Substance: ADALIMUMAB
     Indication: Hidradenitis
     Route: 058

REACTIONS (16)
  - Angiopathy [Unknown]
  - Skin mass [Not Recovered/Not Resolved]
  - Sinus bradycardia [Unknown]
  - Gastrointestinal disorder [Unknown]
  - Anal fistula [Not Recovered/Not Resolved]
  - Thermal burn [Unknown]
  - Varicose vein [Unknown]
  - Musculoskeletal disorder [Unknown]
  - Bradycardia [Unknown]
  - Fistula [Not Recovered/Not Resolved]
  - Mental disorder [Unknown]
  - Stress at work [Unknown]
  - Wound complication [Not Recovered/Not Resolved]
  - Wound secretion [Not Recovered/Not Resolved]
  - Depression [Unknown]
  - COVID-19 [Unknown]

NARRATIVE: CASE EVENT DATE: 20210101
